FAERS Safety Report 25394374 (Version 2)
Quarter: 2025Q2

REPORT INFORMATION
  Report Type: Spontaneous
  Country: US (occurrence: US)
  Receive Date: 20250604
  Receipt Date: 20250605
  Transmission Date: 20250717
  Serious: No
  Sender: BIOGEN
  Company Number: US-BIOGEN-2025BI01304257

PATIENT
  Age: 36 Year
  Sex: Female

DRUGS (1)
  1. TYSABRI [Suspect]
     Active Substance: NATALIZUMAB
     Indication: Multiple sclerosis
     Route: 050
     Dates: start: 20250122

REACTIONS (4)
  - Product storage error [Recovered/Resolved]
  - Poor venous access [Unknown]
  - Multiple sclerosis [Unknown]
  - Illness [Unknown]

NARRATIVE: CASE EVENT DATE: 20250226
